FAERS Safety Report 11589541 (Version 1)
Quarter: 2015Q4

REPORT INFORMATION
  Report Type: Spontaneous
  Country: US (occurrence: US)
  Receive Date: 20151002
  Receipt Date: 20151002
  Transmission Date: 20160304
  Serious: No
  Sender: FDA-Public Use
  Company Number: US-JNJFOC-20150918469

PATIENT
  Sex: Male

DRUGS (2)
  1. CONCERTA [Suspect]
     Active Substance: METHYLPHENIDATE HYDROCHLORIDE
     Indication: ATTENTION DEFICIT/HYPERACTIVITY DISORDER
     Route: 048
  2. MELATONIN [Concomitant]
     Active Substance: MELATONIN
     Indication: RELAXATION THERAPY
     Dosage: 3-5 MG DEPENDS ON WHAT WAS AVAILABLE
     Route: 065

REACTIONS (3)
  - Therapeutic response decreased [Unknown]
  - Adverse drug reaction [Unknown]
  - Underweight [Not Recovered/Not Resolved]
